FAERS Safety Report 10229635 (Version 1)
Quarter: 2014Q2

REPORT INFORMATION
  Report Type: Spontaneous
  Country: US (occurrence: US)
  Receive Date: 20140611
  Receipt Date: 20140611
  Transmission Date: 20141212
  Serious: Yes (Other)
  Sender: FDA-Public Use
  Company Number: US-JNJFOC-20140601209

PATIENT
  Age: 38 Year
  Sex: Female

DRUGS (2)
  1. REOPRO [Suspect]
     Indication: STENT PLACEMENT
     Dosage: START DATE: MAY OR JUN-2014
     Route: 042
     Dates: end: 20140601
  2. BIVALIRUDIN [Suspect]
     Indication: PRODUCT USED FOR UNKNOWN INDICATION
     Route: 065

REACTIONS (2)
  - Coagulation time prolonged [Unknown]
  - Malaise [Unknown]
